FAERS Safety Report 10997334 (Version 30)
Quarter: 2016Q3

REPORT INFORMATION
  Report Type: Report from Study
  Country: US (occurrence: US)
  Receive Date: 20150408
  Receipt Date: 20160817
  Transmission Date: 20161109
  Serious: Yes (Life-Threatening, Hospitalization, Other)
  Sender: FDA-Public Use
  Company Number: US-SA-2015SA033181

PATIENT
  Age: 62 Year
  Sex: Female

DRUGS (8)
  1. LEMTRADA [Suspect]
     Active Substance: ALEMTUZUMAB
     Indication: MULTIPLE SCLEROSIS
     Route: 041
     Dates: start: 20150302, end: 20150304
  2. AMPYRA [Concomitant]
     Active Substance: DALFAMPRIDINE
  3. LEXAPRO [Concomitant]
     Active Substance: ESCITALOPRAM OXALATE
  4. SYNTHROID [Concomitant]
     Active Substance: LEVOTHYROXINE SODIUM
  5. AUBAGIO [Concomitant]
     Active Substance: TERIFLUNOMIDE
  6. AMANTADINE [Concomitant]
     Active Substance: AMANTADINE
  7. LEMTRADA [Suspect]
     Active Substance: ALEMTUZUMAB
     Indication: MULTIPLE SCLEROSIS
     Route: 041
     Dates: start: 20160421, end: 20160423
  8. LEMTRADA [Suspect]
     Active Substance: ALEMTUZUMAB
     Indication: MULTIPLE SCLEROSIS
     Route: 041
     Dates: start: 20150309, end: 20150310

REACTIONS (62)
  - Subdural haematoma [Recovered/Resolved]
  - Confusional state [Recovered/Resolved]
  - Road traffic accident [Unknown]
  - Aphthous ulcer [Unknown]
  - Muscle strain [Unknown]
  - Mobility decreased [Unknown]
  - Depression [Unknown]
  - Bowel movement irregularity [Not Recovered/Not Resolved]
  - Laceration [Not Recovered/Not Resolved]
  - Ill-defined disorder [Unknown]
  - Urinary incontinence [Not Recovered/Not Resolved]
  - Headache [Recovered/Resolved]
  - Speech disorder [Recovered/Resolved]
  - Discomfort [Unknown]
  - Dehydration [Recovering/Resolving]
  - Dysstasia [Recovering/Resolving]
  - Rash [Recovered/Resolved]
  - Rash macular [Not Recovered/Not Resolved]
  - Haematochezia [Not Recovered/Not Resolved]
  - Memory impairment [Recovered/Resolved]
  - Peripheral swelling [Recovered/Resolved]
  - Central nervous system lesion [Unknown]
  - Ill-defined disorder [Recovered/Resolved]
  - Heart rate increased [Unknown]
  - Contusion [Unknown]
  - Urinary tract infection [Not Recovered/Not Resolved]
  - Immunodeficiency [Unknown]
  - Abnormal behaviour [Recovered/Resolved]
  - Peripheral vascular disorder [Not Recovered/Not Resolved]
  - Skin discolouration [Not Recovered/Not Resolved]
  - Syncope [Not Recovered/Not Resolved]
  - Skin discolouration [Not Recovered/Not Resolved]
  - Peripheral swelling [Not Recovered/Not Resolved]
  - Pain in extremity [Recovered/Resolved]
  - Insomnia [Not Recovered/Not Resolved]
  - Skin haemorrhage [Recovered/Resolved]
  - Wrist fracture [Recovered/Resolved]
  - Asthenia [Recovered/Resolved]
  - Grip strength decreased [Unknown]
  - Feeling hot [Unknown]
  - Flushing [Not Recovered/Not Resolved]
  - Skin discolouration [Unknown]
  - Peroneal nerve palsy [Recovering/Resolving]
  - Vasodilatation [Not Recovered/Not Resolved]
  - Feeling abnormal [Unknown]
  - Clumsiness [Unknown]
  - Muscular weakness [Unknown]
  - Palpitations [Recovered/Resolved]
  - Petechiae [Not Recovered/Not Resolved]
  - Blood pressure increased [Unknown]
  - Cerebral haemorrhage [Recovered/Resolved]
  - Computerised tomogram abnormal [Recovered/Resolved]
  - Fall [Not Recovered/Not Resolved]
  - Movement disorder [Unknown]
  - Feeling cold [Unknown]
  - Diplopia [Not Recovered/Not Resolved]
  - Dry skin [Unknown]
  - Oral mucosal discolouration [Unknown]
  - Fatigue [Recovered/Resolved]
  - Hypoaesthesia [Recovering/Resolving]
  - Skin disorder [Recovered/Resolved]
  - Arthralgia [Unknown]

NARRATIVE: CASE EVENT DATE: 2015
